FAERS Safety Report 6064600-8 (Version None)
Quarter: 2009Q1

REPORT INFORMATION
  Report Type: 
  Country: None (occurrence: None)
  Receive Date: 20090204
  Receipt Date: 20090127
  Transmission Date: 20090719
  Serious: Yes (Hospitalization)
  Sender: FDA-Public Use
  Company Number: B0556857A

PATIENT
  Age: 41 Year
  Sex: Female

DRUGS (4)
  1. SEREUPIN [Suspect]
     Indication: PANIC ATTACK
     Dosage: 20MG PER DAY
     Route: 048
     Dates: start: 20090101, end: 20090124
  2. DEBRIDAT [Suspect]
     Indication: NAUSEA
     Dosage: 150MG PER DAY
     Route: 048
     Dates: start: 20090121, end: 20090121
  3. ZOMIG [Suspect]
     Indication: HEADACHE
     Dosage: 2.5MG PER DAY
     Route: 048
     Dates: start: 20090119, end: 20090121
  4. UNKNOWN DRUG [Concomitant]
     Route: 030
     Dates: start: 20090119

REACTIONS (3)
  - BURNING SENSATION [None]
  - PRURITUS [None]
  - RASH GENERALISED [None]
